FAERS Safety Report 11769029 (Version 1)
Quarter: 2015Q4

REPORT INFORMATION
  Report Type: Spontaneous
  Country: US (occurrence: US)
  Receive Date: 20151123
  Receipt Date: 20151123
  Transmission Date: 20160304
  Serious: Yes (Other)
  Sender: FDA-Public Use
  Company Number: US-JNJFOC-20151105444

PATIENT
  Age: 22 Year
  Sex: Male

DRUGS (3)
  1. DOXORUBICIN HYDROCHLORIDE. [Suspect]
     Active Substance: DOXORUBICIN HYDROCHLORIDE
     Indication: VASCULAR NEOPLASM
     Dosage: CONTINUOUS INFUSION OVER 72 HOURS
     Route: 042
  2. CISPLATIN. [Suspect]
     Active Substance: CISPLATIN
     Indication: VASCULAR NEOPLASM
     Dosage: INTRAVENOUS INFUSION OVER 4 HOURS
     Route: 042
  3. CISPLATIN. [Suspect]
     Active Substance: CISPLATIN
     Indication: VASCULAR NEOPLASM
     Dosage: SLOW INFUSION OVER 24 HOURS
     Route: 042

REACTIONS (4)
  - Febrile neutropenia [Unknown]
  - Off label use [Unknown]
  - Mucosal inflammation [Unknown]
  - Product use issue [Unknown]
